FAERS Safety Report 20901123 (Version 1)
Quarter: 2022Q2

REPORT INFORMATION
  Report Type: Spontaneous
  Country: US (occurrence: None)
  Receive Date: 20220601
  Receipt Date: 20220601
  Transmission Date: 20220721
  Serious: Yes (Hospitalization)
  Sender: FDA-Public Use
  Company Number: None

PATIENT
  Sex: Male

DRUGS (1)
  1. LUMAKRAS [Suspect]
     Active Substance: SOTORASIB
     Indication: Lung carcinoma cell type unspecified stage 0
     Dosage: 120MG DAILY BY MOUTH?
     Route: 048
     Dates: start: 202205

REACTIONS (4)
  - Pain [None]
  - Vomiting [None]
  - Asthenia [None]
  - Lung adenocarcinoma [None]
